FAERS Safety Report 6889918-8 (Version None)
Quarter: 2010Q3

REPORT INFORMATION
  Report Type: 
  Country: None (occurrence: None)
  Receive Date: 20100730
  Receipt Date: 20080618
  Transmission Date: 20110219
  Serious: No
  Sender: FDA-Public Use
  Company Number: US-PFIZER INC-2008047147

PATIENT
  Sex: Female
  Weight: 50.454 kg

DRUGS (6)
  1. LIPITOR [Suspect]
     Indication: BLOOD CHOLESTEROL INCREASED
     Dates: start: 20071101
  2. MONTELUKAST SODIUM [Concomitant]
  3. NASONEX [Concomitant]
  4. RISEDRONATE SODIUM [Concomitant]
  5. VITAMINS [Concomitant]
  6. CALCIUM [Concomitant]

REACTIONS (2)
  - DRUG INEFFECTIVE [None]
  - WRONG TECHNIQUE IN DRUG USAGE PROCESS [None]
